FAERS Safety Report 6291703-5 (Version None)
Quarter: 2009Q3

REPORT INFORMATION
  Report Type: 
  Country: None (occurrence: None)
  Receive Date: 20090730
  Receipt Date: 20090721
  Transmission Date: 20100115
  Serious: Yes (Hospitalization, Other)
  Sender: FDA-Public Use
  Company Number: US-ELI_LILLY_AND_COMPANY-US200906001786

PATIENT
  Sex: Female
  Weight: 51.02 kg

DRUGS (8)
  1. FORTEO [Suspect]
     Indication: OSTEOPOROSIS
     Dosage: 20 UG, DAILY (1/D)
     Dates: start: 20070619, end: 20090601
  2. PURINETHOL [Concomitant]
  3. LEVOTHYROXINE SODIUM [Concomitant]
  4. PROZAC [Concomitant]
  5. LYRICA [Concomitant]
  6. SINEMET [Concomitant]
  7. ASPIRIN [Concomitant]
  8. PRESERVISION LUTEIN EYE VITA.+MIN.SUP.SOFTG. [Concomitant]

REACTIONS (3)
  - GAIT DISTURBANCE [None]
  - HIP FRACTURE [None]
  - INTESTINAL OBSTRUCTION [None]
